FAERS Safety Report 10664099 (Version 1)
Quarter: 2014Q4

REPORT INFORMATION
  Report Type: Report from Study
  Country: ES (occurrence: ES)
  Receive Date: 20141219
  Receipt Date: 20141219
  Transmission Date: 20150529
  Serious: Yes (Hospitalization)
  Sender: FDA-Public Use
  Company Number: ES-ABBVIE-14K-144-1322582-00

PATIENT
  Sex: Female
  Weight: 106 kg

DRUGS (2)
  1. HUMIRA [Suspect]
     Active Substance: ADALIMUMAB
     Indication: PSORIASIS
     Dosage: WEEK 0: 80 MG
     Route: 065
     Dates: start: 20100709, end: 20100709
  2. HUMIRA [Suspect]
     Active Substance: ADALIMUMAB
     Dosage: WEEK 1: 40 MG
     Route: 065
     Dates: start: 201007

REACTIONS (1)
  - Tonsillar hypertrophy [Unknown]
